FAERS Safety Report 4336932-2 (Version None)
Quarter: 2004Q2

REPORT INFORMATION
  Report Type: 
  Country: None (occurrence: None)
  Receive Date: 20040408
  Receipt Date: 20040323
  Transmission Date: 20050107
  Serious: Yes (Hospitalization)
  Sender: FDA-Public Use
  Company Number: 189402

PATIENT
  Age: 52 Year
  Sex: Female

DRUGS (6)
  1. AVONEX [Suspect]
     Indication: MULTIPLE SCLEROSIS
     Dosage: 30 MCG QW IM
     Route: 030
     Dates: start: 20010201
  2. ATENOLOL [Concomitant]
  3. BACLOFEN [Concomitant]
  4. DETROL-SLOW [Concomitant]
  5. ALEVE [Concomitant]
  6. ORAL CONTRACEPTIVE [Concomitant]

REACTIONS (2)
  - ANKLE FRACTURE [None]
  - FALL [None]
